FAERS Safety Report 20735887 (Version 1)
Quarter: 2022Q2

REPORT INFORMATION
  Report Type: Report from Study
  Country: FR (occurrence: FR)
  Receive Date: 20220421
  Receipt Date: 20220421
  Transmission Date: 20220720
  Serious: Yes (Hospitalization)
  Sender: FDA-Public Use
  Company Number: FR-BRISTOL-MYERS SQUIBB COMPANY-BMS-2021-046578

PATIENT
  Age: 51 Year
  Sex: Male
  Weight: 48 kg

DRUGS (17)
  1. NIVOLUMAB [Suspect]
     Active Substance: NIVOLUMAB
     Indication: Colorectal cancer metastatic
     Dosage: 240 MILLIGRAM
     Route: 042
     Dates: start: 20201209, end: 20210120
  2. NIVOLUMAB [Suspect]
     Active Substance: NIVOLUMAB
     Dosage: 480 MILLIGRAM
     Route: 042
     Dates: start: 20210414, end: 20210414
  3. NIVOLUMAB [Suspect]
     Active Substance: NIVOLUMAB
     Route: 042
     Dates: start: 20201209, end: 20210120
  4. LOPERAMIDE [Concomitant]
     Active Substance: LOPERAMIDE
     Indication: Product used for unknown indication
     Route: 048
     Dates: start: 20210130
  5. LOPERAMIDE [Concomitant]
     Active Substance: LOPERAMIDE
     Route: 048
     Dates: start: 20210503
  6. PHLOROGLUCINOL [Concomitant]
     Active Substance: PHLOROGLUCINOL
     Indication: Product used for unknown indication
     Dosage: 80 MILLIGRAM
     Route: 048
     Dates: start: 20210130
  7. PHLOROGLUCINOL [Concomitant]
     Active Substance: PHLOROGLUCINOL
     Route: 042
     Dates: start: 20210507, end: 20210517
  8. NICOPATCH [Concomitant]
     Active Substance: NICOTINE
     Indication: Product used for unknown indication
     Dosage: 6 MILLIGRAM
     Route: 048
     Dates: start: 2020
  9. COMIRNATY [Concomitant]
     Active Substance: TOZINAMERAN
     Indication: Prophylaxis
     Route: 030
     Dates: start: 20210414
  10. METRONIDAZOLE [Concomitant]
     Active Substance: METRONIDAZOLE
     Indication: Adverse event
     Route: 048
     Dates: start: 20210503, end: 20210506
  11. PENTAPZAROLE [Concomitant]
     Indication: Prophylaxis
     Route: 042
     Dates: start: 20210507, end: 20210517
  12. SODIUM BICCARBONATE [Concomitant]
     Indication: Adverse event
     Dosage: 6 ABSENT
     Route: 048
     Dates: start: 20210507, end: 202111
  13. MORPHINE CHLORYDRATE [Concomitant]
     Indication: Product used for unknown indication
     Route: 042
     Dates: start: 20210507, end: 20210517
  14. SMECTA [Concomitant]
     Active Substance: MONTMORILLONITE
     Indication: Product used for unknown indication
     Route: 048
     Dates: start: 20210503
  15. COVID 19  PFIZER VACCINE [Concomitant]
     Indication: Prophylaxis
     Route: 030
     Dates: start: 20210414
  16. ENOXAPARIN [Concomitant]
     Active Substance: ENOXAPARIN
     Indication: Prophylaxis
     Dosage: 4000 UNIT NOT SPECIFIED
     Route: 058
     Dates: start: 20210507, end: 20210511
  17. FUNGIZONE [Concomitant]
     Active Substance: AMPHOTERICIN B
     Indication: Product used for unknown indication
     Dosage: 10 UNIT NOT SPECIFIED
     Route: 048
     Dates: start: 20210507, end: 2021

REACTIONS (1)
  - Diarrhoea [Recovered/Resolved with Sequelae]

NARRATIVE: CASE EVENT DATE: 20210507
